FAERS Safety Report 8412111-4 (Version None)
Quarter: 2012Q2

REPORT INFORMATION
  Report Type: 
  Country: None (occurrence: None)
  Receive Date: 20120605
  Receipt Date: 20120525
  Transmission Date: 20120825
  Serious: Yes (Hospitalization)
  Sender: FDA-Public Use
  Company Number: US-VERTEX PHARMACEUTICALS INC.-AE-2012-007788

PATIENT
  Sex: Female
  Weight: 49 kg

DRUGS (11)
  1. RIBAVIRIN [Suspect]
     Indication: HEPATITIS C
     Route: 048
     Dates: start: 20120502, end: 20120524
  2. XANAX [Concomitant]
  3. VITAMIN B-12 [Concomitant]
  4. VX-950 [Suspect]
     Indication: HEPATITIS C
     Route: 048
     Dates: start: 20120502, end: 20120524
  5. HYDROCODONE [Concomitant]
  6. FISH OIL [Concomitant]
  7. PAXIL [Concomitant]
  8. TRAZODONE HCL [Concomitant]
  9. MORPHINE [Concomitant]
  10. MULTI-VITAMINS [Concomitant]
  11. PEGASYS [Suspect]
     Indication: HEPATITIS C
     Route: 058
     Dates: start: 20120502, end: 20120524

REACTIONS (4)
  - ANAEMIA [None]
  - PNEUMONIA [None]
  - HYPOTENSION [None]
  - HYPOXIA [None]
